FAERS Safety Report 9127694 (Version 1)
Quarter: 2013Q1

REPORT INFORMATION
  Report Type: Spontaneous
  Country: US (occurrence: US)
  Receive Date: 20130228
  Receipt Date: 20130228
  Transmission Date: 20140127
  Serious: No
  Sender: FDA-Public Use
  Company Number: US-GLAXOSMITHKLINE-A0993143A

PATIENT
  Age: 42 Year
  Sex: Male

DRUGS (3)
  1. LAMICTAL [Suspect]
     Indication: ANXIETY
     Dosage: 100MG PER DAY
     Route: 048
     Dates: start: 2007, end: 2007
  2. COMBIVIR [Concomitant]
  3. VIREAD [Concomitant]

REACTIONS (5)
  - Drug ineffective [Unknown]
  - Irritability [Unknown]
  - Insomnia [Unknown]
  - Dyspnoea [Unknown]
  - Anxiety [Unknown]
